FAERS Safety Report 22659999 (Version 1)
Quarter: 2023Q2

REPORT INFORMATION
  Report Type: Spontaneous
  Country: US (occurrence: None)
  Receive Date: 20230628
  Receipt Date: 20230628
  Transmission Date: 20230721
  Serious: No
  Sender: FDA-Public Use
  Company Number: None

PATIENT

DRUGS (1)
  1. GLYCERIN [Suspect]
     Active Substance: GLYCERIN
     Route: 061

REACTIONS (4)
  - Product sterility issue [None]
  - Incorrect route of product administration [None]
  - Product communication issue [None]
  - Wrong product administered [None]
